FAERS Safety Report 14519116 (Version 3)
Quarter: 2018Q1

REPORT INFORMATION
  Report Type: Spontaneous
  Country: ES (occurrence: ES)
  Receive Date: 20180212
  Receipt Date: 20180227
  Transmission Date: 20180509
  Serious: Yes (Hospitalization, Other)
  Sender: FDA-Public Use
  Company Number: ES-ABBVIE-18P-144-2250004-00

PATIENT
  Age: 61 Year
  Sex: Female

DRUGS (2)
  1. CYCLOSPORINE. [Concomitant]
     Active Substance: CYCLOSPORINE
     Indication: PRODUCT USED FOR UNKNOWN INDICATION
     Dosage: 75 MG DAILY
  2. MAVIRET [Suspect]
     Active Substance: GLECAPREVIR\PIBRENTASVIR
     Indication: CHRONIC HEPATITIS C
     Route: 048
     Dates: start: 20180113

REACTIONS (9)
  - Productive cough [Unknown]
  - Cough [Unknown]
  - Muscle spasms [Unknown]
  - Back pain [Unknown]
  - Acute kidney injury [Unknown]
  - Hypocalcaemia [Recovering/Resolving]
  - Blood creatinine increased [Unknown]
  - Paraesthesia [Unknown]
  - Hypercalcaemia [Recovered/Resolved]

NARRATIVE: CASE EVENT DATE: 201801
